FAERS Safety Report 25166786 (Version 1)
Quarter: 2025Q2

REPORT INFORMATION
  Report Type: Report from Study
  Country: FR (occurrence: FR)
  Receive Date: 20250407
  Receipt Date: 20250407
  Transmission Date: 20250716
  Serious: Yes (Other)
  Sender: ORPHALAN
  Company Number: FR-ORPHALAN-FR-ORP-25-00082

PATIENT

DRUGS (1)
  1. TRIENTINE TETRAHYDROCHLORIDE [Suspect]
     Active Substance: TRIENTINE TETRAHYDROCHLORIDE
     Indication: Hepato-lenticular degeneration
     Route: 048
     Dates: start: 20200915, end: 20230510

REACTIONS (2)
  - Abortion spontaneous [Unknown]
  - Abortion spontaneous [Unknown]
